FAERS Safety Report 7061464-0 (Version None)
Quarter: 2010Q4

REPORT INFORMATION
  Report Type: 
  Country: None (occurrence: None)
  Receive Date: 20101026
  Receipt Date: 20101012
  Transmission Date: 20110411
  Serious: Yes (Hospitalization)
  Sender: FDA-Public Use
  Company Number: US-ELI_LILLY_AND_COMPANY-US201008003015

PATIENT
  Sex: Female

DRUGS (13)
  1. CYMBALTA [Suspect]
     Indication: FIBROMYALGIA
     Dosage: 60 MG, UNK
  2. CYMBALTA [Suspect]
     Dosage: 30 MG, UNK
  3. CYMBALTA [Suspect]
     Dosage: 60 MG, UNK
  4. METFORMIN [Concomitant]
  5. ZETIA [Concomitant]
  6. ESTROGENS [Concomitant]
  7. OMEPRAZOLE [Concomitant]
  8. LYRICA [Concomitant]
  9. AMBIEN [Concomitant]
  10. CYCLOBENZAPRINE [Concomitant]
  11. COENZYME [Concomitant]
  12. VITAMIN A [Concomitant]
  13. VITAMINS [Concomitant]

REACTIONS (10)
  - BILIARY COLIC [None]
  - BLOOD GLUCOSE INCREASED [None]
  - CHOLECYSTITIS CHRONIC [None]
  - CHOLELITHIASIS [None]
  - DIARRHOEA [None]
  - DRUG INEFFECTIVE [None]
  - FATIGUE [None]
  - FEELING ABNORMAL [None]
  - NAUSEA [None]
  - PAIN [None]
